FAERS Safety Report 4979659-6 (Version None)
Quarter: 2006Q2

REPORT INFORMATION
  Report Type: 
  Country: None (occurrence: None)
  Receive Date: 20060418
  Receipt Date: 20060405
  Transmission Date: 20061013
  Serious: Yes (Hospitalization)
  Sender: FDA-Public Use
  Company Number: 2006-03-1249

PATIENT
  Age: 63 Year
  Sex: Male

DRUGS (6)
  1. TEMODAL [Suspect]
     Indication: GLIOBLASTOMA MULTIFORME
     Dosage: 75 MG/M2 ORAL
     Route: 048
     Dates: start: 20050808, end: 20050921
  2. EUSAPRIM [Suspect]
     Indication: ANTIBIOTIC PROPHYLAXIS
     Dosage: ORAL
     Route: 048
     Dates: start: 20050808, end: 20050922
  3. RADIATION THERAPY [Suspect]
     Indication: GLIOBLASTOMA MULTIFORME
     Dosage: X-RAY THERAPY
     Dates: start: 20050808, end: 20050922
  4. PRIMPERAN TAB [Concomitant]
  5. MEDROL [Concomitant]
  6. ZANTAC [Concomitant]

REACTIONS (2)
  - DRUG INTERACTION [None]
  - HEPATITIS TOXIC [None]
